FAERS Safety Report 12458791 (Version 1)
Quarter: 2016Q2

REPORT INFORMATION
  Report Type: Spontaneous
  Country: US (occurrence: None)
  Receive Date: 20160610
  Receipt Date: 20160610
  Transmission Date: 20160815
  Serious: Yes (Other)
  Sender: FDA-Public Use
  Company Number: None

PATIENT
  Age: 63 Year
  Sex: Female
  Weight: 83.92 kg

DRUGS (7)
  1. FLUOXETINE [Concomitant]
     Active Substance: FLUOXETINE HYDROCHLORIDE
  2. AMLODIPINE BESYLATE. [Concomitant]
     Active Substance: AMLODIPINE BESYLATE
  3. LEVOXYL [Concomitant]
     Active Substance: LEVOTHYROXINE SODIUM
  4. CRESTOR [Concomitant]
     Active Substance: ROSUVASTATIN CALCIUM
  5. NAPROSYN [Concomitant]
     Active Substance: NAPROXEN
  6. HYDROCHLOROTHRIAZIDE [Concomitant]
  7. SULFASALAZINE DR, 500 MG GREENSTONE BRAND [Suspect]
     Active Substance: SULFASALAZINE
     Indication: ARTHRITIS
     Dosage: 24 TABLET(S) AS DIRECTED TAKEN BY MOUTH
     Route: 048
     Dates: start: 20160510, end: 20160523

REACTIONS (5)
  - Headache [None]
  - Arthritis [None]
  - Urinary tract infection [None]
  - Platelet count decreased [None]
  - Pyrexia [None]

NARRATIVE: CASE EVENT DATE: 20160523
